FAERS Safety Report 5664570-8 (Version None)
Quarter: 2008Q1

REPORT INFORMATION
  Report Type: 
  Country: None (occurrence: None)
  Receive Date: 20080314
  Receipt Date: 20080311
  Transmission Date: 20080703
  Serious: Yes (Life-Threatening)
  Sender: FDA-Public Use
  Company Number: JP-JNJFOC-20080303110

PATIENT
  Age: 70 Year
  Sex: Male
  Weight: 38 kg

DRUGS (22)
  1. ITRIZOLE [Suspect]
     Route: 042
  2. ITRIZOLE [Suspect]
     Indication: BRONCHOPULMONARY ASPERGILLOSIS
     Route: 042
  3. RISPERIDONE [Suspect]
     Indication: DELIRIUM
     Route: 048
  4. FAMOTIDINE [Concomitant]
     Indication: PROPHYLAXIS
     Route: 048
  5. SLO-BID [Concomitant]
     Indication: EMPHYSEMA
     Route: 048
  6. SLO-BID [Concomitant]
     Indication: LUNG CYST BENIGN
     Route: 048
  7. GLORIAMIN [Concomitant]
     Indication: PROPHYLAXIS
     Route: 048
  8. BIOFERMIN [Concomitant]
     Indication: PROPHYLAXIS
     Route: 048
  9. PREDONINE [Concomitant]
     Indication: EMPHYSEMA
     Route: 048
  10. PREDONINE [Concomitant]
     Indication: LUNG CYST BENIGN
     Route: 048
  11. WARKMAN [Concomitant]
     Indication: OSTEOPOROSIS
     Route: 048
  12. ALLOZYM [Concomitant]
     Indication: HYPERURICAEMIA
     Route: 048
  13. ALLOZYM [Concomitant]
     Indication: OSTEOPOROSIS
     Route: 048
  14. ALLEGRA [Concomitant]
     Indication: PRURITUS
     Route: 048
  15. SUNRYTHM [Concomitant]
     Indication: SUPRAVENTRICULAR EXTRASYSTOLES
     Route: 048
  16. TERSIGAN [Concomitant]
     Indication: EMPHYSEMA
     Route: 055
  17. TERSIGAN [Concomitant]
     Indication: LUNG CYST BENIGN
     Route: 055
  18. ADONA [Concomitant]
     Indication: HAEMOPTYSIS
     Route: 048
  19. TRANSAMIN [Concomitant]
     Indication: HAEMOPTYSIS
     Route: 048
  20. RIVOTRIL [Concomitant]
     Indication: CONVULSION
     Route: 048
  21. U PAN [Concomitant]
     Indication: INSOMNIA
     Route: 048
  22. ROHYPNOL [Concomitant]
     Indication: INSOMNIA
     Route: 048

REACTIONS (6)
  - CONVULSION [None]
  - DELIRIUM [None]
  - HAEMOPTYSIS [None]
  - HYPERCAPNIA [None]
  - HYPOKALAEMIA [None]
  - RESPIRATORY ACIDOSIS [None]
